APPROVED DRUG PRODUCT: CITALOPRAM HYDROBROMIDE
Active Ingredient: CITALOPRAM HYDROBROMIDE
Strength: EQ 20MG BASE
Dosage Form/Route: TABLET;ORAL
Application: A077046 | Product #002
Applicant: APOTEX INC
Approved: Nov 24, 2004 | RLD: No | RS: No | Type: DISCN